FAERS Safety Report 7397620-1 (Version None)
Quarter: 2011Q2

REPORT INFORMATION
  Report Type: 
  Country: None (occurrence: None)
  Receive Date: 20110406
  Receipt Date: 20110330
  Transmission Date: 20111010
  Serious: Yes (Hospitalization)
  Sender: FDA-Public Use
  Company Number: FR-BRISTOL-MYERS SQUIBB COMPANY-15646482

PATIENT
  Age: 63 Year
  Sex: Female

DRUGS (2)
  1. REYATAZ [Suspect]
     Dates: start: 20101201
  2. TRUVADA [Suspect]
     Dates: start: 20101201

REACTIONS (1)
  - RENAL FAILURE ACUTE [None]
